FAERS Safety Report 6787294-2 (Version None)
Quarter: 2010Q2

REPORT INFORMATION
  Report Type: 
  Country: None (occurrence: None)
  Receive Date: 20100623
  Receipt Date: 20060112
  Transmission Date: 20101027
  Serious: No
  Sender: FDA-Public Use
  Company Number: US-PFIZER INC-2005095804

PATIENT
  Sex: Female
  Weight: 61.23 kg

DRUGS (5)
  1. XALATAN [Suspect]
     Indication: GLAUCOMA
     Route: 047
  2. CYCLOSPORINE [Concomitant]
     Route: 047
     Dates: start: 20040701
  3. HYPOTEARS DDPF [Concomitant]
     Route: 047
  4. VALSARTAN [Concomitant]
     Route: 048
  5. LASIX [Concomitant]
     Route: 048

REACTIONS (5)
  - DRY EYE [None]
  - EXPIRED DRUG ADMINISTERED [None]
  - EYE PAIN [None]
  - HEADACHE [None]
  - MACULAR DEGENERATION [None]
